FAERS Safety Report 11248179 (Version 1)
Quarter: 2015Q3

REPORT INFORMATION
  Report Type: Spontaneous
  Country: US (occurrence: None)
  Receive Date: 20150707
  Receipt Date: 20150707
  Transmission Date: 20151125
  Serious: No
  Sender: FDA-Public Use
  Company Number: None

PATIENT
  Age: 49 Year
  Sex: Female
  Weight: 58.97 kg

DRUGS (6)
  1. FISH OIL [Concomitant]
     Active Substance: FISH OIL
  2. CITRACAL [Concomitant]
     Active Substance: CALCIUM CITRATE
  3. ESTER C [Concomitant]
  4. ELIDEL [Suspect]
     Active Substance: PIMECROLIMUS
     Indication: ECZEMA
     Dosage: AS NEEDED ?APPLIED TO A SURFACE, USUALLY THE SKIN?ONE USE
  5. COSTCO ADULT MULTIVITAMIN [Concomitant]
  6. ESTRACE [Concomitant]
     Active Substance: ESTRADIOL

REACTIONS (3)
  - Swelling face [None]
  - Lymphadenopathy [None]
  - Hypoaesthesia [None]

NARRATIVE: CASE EVENT DATE: 20150704
